FAERS Safety Report 8859104 (Version 1)
Quarter: 2012Q4

REPORT INFORMATION
  Report Type: 
  Country: GR (occurrence: GR)
  Receive Date: 20121024
  Receipt Date: 20121024
  Transmission Date: 20130627
  Serious: Yes (Other)
  Sender: FDA-Public Use
  Company Number: GR-PFIZER INC-2012261946

PATIENT
  Age: 31 Year
  Sex: Female

DRUGS (6)
  1. MEDROL [Suspect]
     Dosage: 24 mg, UNK
     Dates: start: 20121019
  2. BUTAMIRATE CITRATE [Suspect]
     Indication: COUGH
     Dosage: UNK
     Dates: start: 20121019
  3. AERIUS [Concomitant]
     Indication: COUGH
     Dosage: UNK
  4. AERIUS [Concomitant]
     Indication: RHINITIS ALLERGIC
  5. DEXA-RHINOSPRAY N [Concomitant]
     Indication: COUGH
     Dosage: UNK
  6. DEXA-RHINOSPRAY N [Concomitant]
     Indication: RHINITIS ALLERGIC

REACTIONS (2)
  - Blindness unilateral [Recovered/Resolved]
  - Vision blurred [Recovered/Resolved]
